FAERS Safety Report 4550975-5 (Version None)
Quarter: 2004Q4

REPORT INFORMATION
  Report Type: 
  Country: None (occurrence: None)
  Receive Date: 20041217
  Receipt Date: 20040820
  Transmission Date: 20050328
  Serious: No
  Sender: FDA-Public Use
  Company Number: 2004-BP-07149BP(0)

PATIENT
  Sex: Female

DRUGS (12)
  1. SPIRIVA [Suspect]
     Indication: CHRONIC OBSTRUCTIVE AIRWAYS DISEASE
     Dosage: 18 MCG (18 MCG) IH
     Route: 055
     Dates: start: 20040806, end: 20040814
  2. LIPITOR [Concomitant]
  3. KLENOPIN [Concomitant]
  4. ZOLOFT [Concomitant]
  5. ADVAIR (SERETIDE MITE) [Concomitant]
  6. ASPIRIN [Concomitant]
  7. SYNTHROID [Concomitant]
  8. OXYBUTIN [Concomitant]
  9. ZANTAC [Concomitant]
  10. ULTRAM [Concomitant]
  11. ASTELIN [Concomitant]
  12. INVATAN [Concomitant]

REACTIONS (4)
  - ABDOMINAL DISTENSION [None]
  - NAUSEA [None]
  - REFLUX GASTRITIS [None]
  - VOMITING [None]
